FAERS Safety Report 16338698 (Version 1)
Quarter: 2019Q2

REPORT INFORMATION
  Report Type: Not Available
  Country: US (occurrence: US)
  Receive Date: 20190521
  Receipt Date: 20190521
  Transmission Date: 20190711
  Serious: No
  Sender: FDA-Public Use
  Company Number: US-NEUROCRINE BIOSCIENCES INC.-2019NBI01205

PATIENT
  Sex: Female

DRUGS (21)
  1. ESCITALOPRAM [Concomitant]
     Active Substance: ESCITALOPRAM OXALATE
  2. LEVOCETIRIZINE [Concomitant]
     Active Substance: LEVOCETIRIZINE
  3. DUREZOL [Concomitant]
     Active Substance: DIFLUPREDNATE
  4. ZOLPIDEM [Concomitant]
     Active Substance: ZOLPIDEM\ZOLPIDEM TARTRATE
  5. LATANOPROST. [Concomitant]
     Active Substance: LATANOPROST
  6. BACLOFEN. [Concomitant]
     Active Substance: BACLOFEN
  7. OFLOXACIN. [Concomitant]
     Active Substance: OFLOXACIN
  8. DICLOFENAC [Concomitant]
     Active Substance: DICLOFENAC
  9. FLUTICASONE. [Concomitant]
     Active Substance: FLUTICASONE
  10. MONTELUKAST [Concomitant]
     Active Substance: MONTELUKAST SODIUM
  11. INGREZZA [Suspect]
     Active Substance: VALBENAZINE
     Indication: TARDIVE DYSKINESIA
     Dosage: 40 MG X 2 CAPSULE
     Route: 048
  12. IBUPROFEN. [Concomitant]
     Active Substance: IBUPROFEN
  13. DULOXETINE. [Concomitant]
     Active Substance: DULOXETINE
  14. PROMETHAZINE [Concomitant]
     Active Substance: PROMETHAZINE\PROMETHAZINE HYDROCHLORIDE
  15. LIDOCAINE. [Concomitant]
     Active Substance: LIDOCAINE
  16. VENTOLIN [Concomitant]
     Active Substance: ALBUTEROL SULFATE
  17. BRIMONIDINE [Concomitant]
     Active Substance: BRIMONIDINE TARTRATE
  18. OXYCODONE [Concomitant]
     Active Substance: OXYCODONE
  19. LISINOPRIL. [Concomitant]
     Active Substance: LISINOPRIL
  20. LIPITOR [Concomitant]
     Active Substance: ATORVASTATIN CALCIUM
  21. CARBIDOPA W/LEVODOPA [Concomitant]
     Active Substance: CARBIDOPA\LEVODOPA

REACTIONS (1)
  - Tremor [Unknown]
